FAERS Safety Report 6672344-4 (Version None)
Quarter: 2010Q2

REPORT INFORMATION
  Report Type: 
  Country: None (occurrence: None)
  Receive Date: 20100408
  Receipt Date: 20100303
  Transmission Date: 20101027
  Serious: No
  Sender: FDA-Public Use
  Company Number: A0848038A

PATIENT
  Age: 84 Year
  Sex: Female

DRUGS (11)
  1. REQUIP XL [Suspect]
     Indication: PARKINSON'S DISEASE
     Dosage: 8MG AT NIGHT
     Route: 048
     Dates: start: 20090901
  2. CARBIDOPA-LEVODOPA [Concomitant]
  3. EXFORGE [Concomitant]
  4. BYSTOLIC [Concomitant]
  5. LORAZEPAM [Concomitant]
  6. ASPIRIN [Concomitant]
  7. ESTRADIOL [Concomitant]
  8. CLONIDIN HCL [Concomitant]
  9. DETROL LA [Concomitant]
  10. JUICE PLUS [Concomitant]
  11. VITAMINS [Concomitant]

REACTIONS (4)
  - ADVERSE DRUG REACTION [None]
  - DRUG INEFFECTIVE [None]
  - DRY MOUTH [None]
  - TONGUE DISCOLOURATION [None]
